FAERS Safety Report 4939987-7 (Version None)
Quarter: 2006Q1

REPORT INFORMATION
  Report Type: 
  Country: None (occurrence: None)
  Receive Date: 20060310
  Receipt Date: 20060224
  Transmission Date: 20060701
  Serious: Yes (Other)
  Sender: FDA-Public Use
  Company Number: HQWYE035827FEB06

PATIENT
  Sex: Male
  Weight: 69 kg

DRUGS (9)
  1. ENBREL [Suspect]
     Indication: RHEUMATOID ARTHRITIS
     Route: 058
     Dates: start: 20050405
  2. GASTER [Concomitant]
     Indication: PROPHYLAXIS AGAINST GASTROINTESTINAL ULCER
     Dates: start: 20050118
  3. EPINASTINE HYDROCHLORIDE [Concomitant]
     Indication: RHINITIS ALLERGIC
     Dates: start: 20050308
  4. RISEDRONIC  ACID [Concomitant]
     Indication: OSTEOPOROSIS PROPHYLAXIS
     Dates: start: 20050809
  5. NEORAL [Concomitant]
     Indication: RHEUMATOID ARTHRITIS
     Dates: start: 20050222, end: 20050308
  6. NEORAL [Concomitant]
     Dates: start: 20050309
  7. AZULFIDINE [Concomitant]
     Indication: RHEUMATOID ARTHRITIS
  8. PREDONINE [Concomitant]
     Indication: RHEUMATOID ARTHRITIS
     Dosage: DOSE AND FREQUENCY NOT SPECIFIED
     Dates: start: 20050323
  9. INFREE [Concomitant]
     Indication: RHEUMATOID ARTHRITIS

REACTIONS (4)
  - ATRIAL FIBRILLATION [None]
  - CARDIOMEGALY [None]
  - PLEURAL EFFUSION [None]
  - PLEURISY [None]
